FAERS Safety Report 10159900 (Version 1)
Quarter: 2014Q2

REPORT INFORMATION
  Report Type: Spontaneous
  Country: US (occurrence: US)
  Receive Date: 20140508
  Receipt Date: 20140508
  Transmission Date: 20141212
  Serious: No
  Sender: FDA-Public Use
  Company Number: US-GLAXOSMITHKLINE-A1040264A

PATIENT
  Age: 81 Year
  Sex: Female

DRUGS (14)
  1. TYKERB [Suspect]
     Indication: BREAST CANCER
     Dosage: 1000MG PER DAY
     Route: 048
     Dates: start: 20130727
  2. LEVOTHYROXINE [Concomitant]
  3. WARFARIN [Concomitant]
  4. PROPRANOLOL [Concomitant]
  5. LOSARTAN [Concomitant]
  6. CRESTOR [Concomitant]
  7. VITAMIN B6 [Concomitant]
  8. UNSPECIFIED DRUG [Concomitant]
  9. MULTIVITAMIN [Concomitant]
  10. MAGNESIUM [Concomitant]
  11. FISH OIL [Concomitant]
  12. GLUCOSAMINE [Concomitant]
  13. FOLIC ACID [Concomitant]
  14. VITAMIN B 12 [Concomitant]

REACTIONS (2)
  - Hypoaesthesia [Recovering/Resolving]
  - Diarrhoea [Unknown]
